FAERS Safety Report 4740877-3 (Version None)
Quarter: 2005Q3

REPORT INFORMATION
  Report Type: 
  Country: None (occurrence: None)
  Receive Date: 20050810
  Receipt Date: 20050228
  Transmission Date: 20060218
  Serious: No
  Sender: FDA-Public Use
  Company Number: US-GLAXOSMITHKLINE-A0547524A

PATIENT
  Age: 89 Year
  Sex: Male

DRUGS (2)
  1. TAGAMET HB 200 [Suspect]
     Dates: start: 20050227, end: 20050227
  2. PHENYTOIN [Concomitant]

REACTIONS (3)
  - ABDOMINAL DISTENSION [None]
  - FLATULENCE [None]
  - STOMACH DISCOMFORT [None]
